FAERS Safety Report 8559085 (Version 2)
Quarter: 2013Q4

REPORT INFORMATION
  Report Type: Spontaneous
  Country: US (occurrence: US)
  Receive Date: 20120511
  Receipt Date: 20131107
  Transmission Date: 20140711
  Serious: Yes (Hospitalization)
  Sender: FDA-Public Use
  Company Number: US-ROXANE LABORATORIES, INC.-2012-RO-01180RO

PATIENT
  Age: 3 Year
  Sex: Male
  Weight: 12 kg

DRUGS (10)
  1. DIAZEPAM [Suspect]
     Indication: CONVULSION
     Dosage: 6 MG
     Route: 048
     Dates: start: 20100202
  2. DEPAKOTE [Suspect]
     Indication: CONVULSION
     Dosage: 375 MG
     Route: 048
     Dates: start: 20120117
  3. TOPAMAX [Suspect]
     Indication: CONVULSION
     Dosage: 105 MG
     Route: 048
     Dates: start: 20111108
  4. KEPPRA [Concomitant]
     Dosage: 800 MG
     Route: 048
  5. POLYVISOL [Concomitant]
     Route: 048
  6. RANITIDINE [Concomitant]
     Route: 048
     Dates: start: 2009
  7. MELATONIN [Concomitant]
     Dosage: 5 MG
     Route: 048
     Dates: start: 2009
  8. KLONOPIN [Concomitant]
  9. ONFI [Concomitant]
  10. MIRALAX [Concomitant]

REACTIONS (4)
  - Lethargy [Recovered/Resolved]
  - Dehydration [Recovered/Resolved]
  - Joint dislocation [Recovered/Resolved]
  - Muscular weakness [Recovered/Resolved]
